FAERS Safety Report 10027709 (Version 4)
Quarter: 2014Q2

REPORT INFORMATION
  Report Type: Report from Study
  Country: CA (occurrence: CA)
  Receive Date: 20140321
  Receipt Date: 20140623
  Transmission Date: 20141212
  Serious: Yes (Hospitalization, Other)
  Sender: FDA-Public Use
  Company Number: CA-ABBVIE-14P-028-1213301-00

PATIENT
  Age: 85 Year
  Sex: Male
  Weight: 90.8 kg

DRUGS (1)
  1. LUPRON DEPOT [Suspect]
     Indication: PROSTATE CANCER
     Dates: start: 20130621, end: 20140321

REACTIONS (5)
  - Renal impairment [Not Recovered/Not Resolved]
  - Disease complication [Not Recovered/Not Resolved]
  - Blood glucose abnormal [Not Recovered/Not Resolved]
  - Delirium [Unknown]
  - Blood pressure decreased [Unknown]
